FAERS Safety Report 6754986-0 (Version None)
Quarter: 2010Q2

REPORT INFORMATION
  Report Type: 
  Country: None (occurrence: None)
  Receive Date: 20100602
  Receipt Date: 20100527
  Transmission Date: 20101027
  Serious: Yes (Other)
  Sender: FDA-Public Use
  Company Number: 2010SP023832

PATIENT
  Age: 68 Year
  Sex: Female

DRUGS (11)
  1. TEMODAL [Suspect]
     Indication: GLIOBLASTOMA MULTIFORME
     Dosage: 120 MG; QD; PO
     Route: 048
     Dates: start: 20040803, end: 20040823
  2. DEXAMETHASONE [Concomitant]
  3. TIAZAC [Concomitant]
  4. ATENOLOL [Concomitant]
  5. NOVO-HYDRAZIDE [Concomitant]
  6. LOSEC I.V. [Concomitant]
  7. FLUCONAZOLE [Concomitant]
  8. ESTROGEN [Concomitant]
  9. MULTIPLE VITAMIN [Concomitant]
  10. PROCHLORPERAZIN [Concomitant]
  11. SEPTRA DS [Concomitant]

REACTIONS (4)
  - GLIOBLASTOMA MULTIFORME [None]
  - HAEMODIALYSIS [None]
  - MALIGNANT NEOPLASM PROGRESSION [None]
  - RENAL FAILURE CHRONIC [None]
